FAERS Safety Report 7591245-0 (Version None)
Quarter: 2011Q3

REPORT INFORMATION
  Report Type: 
  Country: None (occurrence: None)
  Receive Date: 20110706
  Receipt Date: 20110627
  Transmission Date: 20111222
  Serious: No
  Sender: FDA-Public Use
  Company Number: US-BIOGENIDEC-2010BI041064

PATIENT
  Age: 45 Year
  Sex: Male

DRUGS (2)
  1. TYSABRI [Suspect]
     Indication: MULTIPLE SCLEROSIS
     Route: 042
     Dates: start: 20100630
  2. MEDICATION (NOS) [Concomitant]
     Indication: FATIGUE

REACTIONS (8)
  - ANGER [None]
  - BALANCE DISORDER [None]
  - IRRITABILITY [None]
  - FATIGUE [None]
  - FALL [None]
  - URINARY TRACT INFECTION [None]
  - HYPOAESTHESIA [None]
  - DEPRESSED MOOD [None]
